FAERS Safety Report 23517310 (Version 1)
Quarter: 2024Q1

REPORT INFORMATION
  Report Type: Spontaneous
  Country: PL (occurrence: PL)
  Receive Date: 20240213
  Receipt Date: 20240213
  Transmission Date: 20240410
  Serious: Yes (Hospitalization)
  Sender: FDA-Public Use
  Company Number: None

PATIENT
  Age: 50 Year
  Sex: Male
  Weight: 80 kg

DRUGS (5)
  1. DULOXETINE [Suspect]
     Active Substance: DULOXETINE
     Indication: Depression
     Dosage: 30 MILLIGRAM, QD (1-0-0)
     Route: 048
     Dates: start: 201712
  2. PREGABALIN [Suspect]
     Active Substance: PREGABALIN
     Indication: Depression
     Dosage: 75 MILLIGRAM, BID (1-0-1)
     Route: 048
     Dates: start: 201612
  3. LEVETIRACETAM [Suspect]
     Active Substance: LEVETIRACETAM
     Indication: Partial seizures
     Dosage: 1 GRAM, BID (1-0-1)
     Route: 048
     Dates: start: 2012
  4. QUETIAPINE FUMARATE [Suspect]
     Active Substance: QUETIAPINE FUMARATE
     Indication: Insomnia
     Dosage: 25 MILLIGRAM, QD (0-0-1)
     Route: 048
     Dates: start: 201612
  5. LAMOTRIGINE [Suspect]
     Active Substance: LAMOTRIGINE
     Indication: Partial seizures
     Dosage: 50 MILLIGRAM, BID (1-0-1)
     Route: 048
     Dates: start: 2008

REACTIONS (6)
  - Hypertriglyceridaemia [Recovering/Resolving]
  - Pancreatitis [Recovering/Resolving]
  - Hypercholesterolaemia [Recovering/Resolving]
  - Alanine aminotransferase increased [Recovering/Resolving]
  - Gamma-glutamyltransferase increased [Recovering/Resolving]
  - Aspartate aminotransferase increased [Recovering/Resolving]

NARRATIVE: CASE EVENT DATE: 20190811
